FAERS Safety Report 6067797-9 (Version None)
Quarter: 2009Q1

REPORT INFORMATION
  Report Type: 
  Country: None (occurrence: None)
  Receive Date: 20090205
  Receipt Date: 20090129
  Transmission Date: 20090719
  Serious: Yes (Other)
  Sender: FDA-Public Use
  Company Number: ES-MERCK-0902ESP00001

PATIENT
  Age: 18 Month
  Sex: Male

DRUGS (3)
  1. SINGULAIR [Suspect]
     Indication: PROPHYLAXIS
     Route: 048
     Dates: start: 20090126, end: 20090126
  2. ALBUTEROL [Concomitant]
  3. BUDESONIDE [Concomitant]

REACTIONS (6)
  - CHEILITIS [None]
  - GLOSSITIS [None]
  - LIP SWELLING [None]
  - OEDEMA MOUTH [None]
  - ORAL MUCOSAL ERYTHEMA [None]
  - PAPILLITIS [None]
